FAERS Safety Report 6683807-X (Version None)
Quarter: 2010Q2

REPORT INFORMATION
  Report Type: 
  Country: None (occurrence: None)
  Receive Date: 20100416
  Receipt Date: 20100407
  Transmission Date: 20101027
  Serious: No
  Sender: FDA-Public Use
  Company Number: 2009BI032861

PATIENT
  Age: 51 Year
  Sex: Female

DRUGS (1)
  1. TYSABRI [Suspect]
     Indication: MULTIPLE SCLEROSIS
     Route: 042
     Dates: start: 20081211, end: 20090821

REACTIONS (2)
  - DRUG INEFFECTIVE [None]
  - MUSCULOSKELETAL STIFFNESS [None]
